FAERS Safety Report 10612371 (Version 1)
Quarter: 2014Q4

REPORT INFORMATION
  Report Type: Spontaneous
  Country: GB (occurrence: GB)
  Receive Date: 20141127
  Receipt Date: 20141127
  Transmission Date: 20150529
  Serious: Yes (Life-Threatening, Hospitalization)
  Sender: FDA-Public Use
  Company Number: GB-RANBAXY-2014R1-88363

PATIENT
  Age: 59 Year
  Sex: Male

DRUGS (2)
  1. SIMVASTATIN. [Concomitant]
     Active Substance: SIMVASTATIN
     Indication: HYPERCHOLESTEROLAEMIA
     Dosage: UNK
     Route: 065
  2. METFORMIN [Suspect]
     Active Substance: METFORMIN HYDROCHLORIDE
     Indication: TYPE 2 DIABETES MELLITUS
     Dosage: UNK
     Route: 065

REACTIONS (6)
  - Hypoglycaemia [Unknown]
  - Diarrhoea [Unknown]
  - Lactic acidosis [Recovered/Resolved]
  - Vomiting [Unknown]
  - Cardiac arrest [Recovered/Resolved]
  - Acute kidney injury [Recovering/Resolving]
